FAERS Safety Report 4727505-8 (Version None)
Quarter: 2005Q3

REPORT INFORMATION
  Report Type: 
  Country: None (occurrence: None)
  Receive Date: 20050727
  Receipt Date: 20050727
  Transmission Date: 20060218
  Serious: No
  Sender: FDA-Public Use
  Company Number: None

PATIENT
  Sex: Female

DRUGS (2)
  1. FLEXERIL [Suspect]
     Dosage: 10MG TID
  2. ROBAXIN [Suspect]
     Dosage: 500 TID

REACTIONS (2)
  - LETHARGY [None]
  - NAUSEA [None]
